FAERS Safety Report 13795031 (Version 2)
Quarter: 2018Q1

REPORT INFORMATION
  Report Type: Spontaneous
  Country: DK (occurrence: DK)
  Receive Date: 20170726
  Receipt Date: 20180306
  Transmission Date: 20180508
  Serious: Yes (Other)
  Sender: FDA-Public Use
  Company Number: DK-UCBSA-2017028406

PATIENT
  Age: 53 Year
  Sex: Female

DRUGS (4)
  1. CIMZIA [Suspect]
     Active Substance: CERTOLIZUMAB PEGOL
     Indication: PSORIATIC ARTHROPATHY
     Dosage: 200 MG, EV 2 WEEKS(QOW) STRENGTH 200 MG
     Route: 058
     Dates: start: 20141204, end: 20151106
  2. METHOTREXAT [Concomitant]
     Active Substance: METHOTREXATE
     Dosage: UNK
     Route: 048
     Dates: start: 20160118
  3. INFLIXIMAB [Concomitant]
     Active Substance: INFLIXIMAB
     Indication: PSORIATIC ARTHROPATHY
     Dosage: DOSIS: GIVES 350 MG I.V. UGE 0, 2, 6, +6
     Route: 042
     Dates: start: 20160401
  4. METHOTREXAT [Concomitant]
     Active Substance: METHOTREXATE
     Indication: PSORIATIC ARTHROPATHY
     Dosage: UNK
     Dates: start: 20110707, end: 20151106

REACTIONS (3)
  - Therapeutic response decreased [Unknown]
  - Lip and/or oral cavity cancer stage 0 [Recovered/Resolved]
  - Infection [Unknown]

NARRATIVE: CASE EVENT DATE: 20170213
